FAERS Safety Report 14770766 (Version 2)
Quarter: 2019Q1

REPORT INFORMATION
  Report Type: Spontaneous
  Country: GB (occurrence: GB)
  Receive Date: 20180417
  Receipt Date: 20190125
  Transmission Date: 20190417
  Serious: Yes (Other)
  Sender: FDA-Public Use
  Company Number: GB-MYLANLABS-2018M1024060

PATIENT
  Age: 43 Year
  Sex: Male

DRUGS (2)
  1. DECAPEPTYL (ACETATE) [Suspect]
     Active Substance: TRIPTORELIN ACETATE
     Indication: HORMONE THERAPY
     Route: 065
  2. ESTRADIOL. [Suspect]
     Active Substance: ESTRADIOL
     Indication: HORMONE THERAPY
     Route: 065

REACTIONS (4)
  - Pulmonary fibrosis [Unknown]
  - Scleroderma [Unknown]
  - Myositis [Recovering/Resolving]
  - Gastrooesophageal reflux disease [Unknown]
